FAERS Safety Report 21445156 (Version 1)
Quarter: 2022Q4

REPORT INFORMATION
  Report Type: Spontaneous
  Country: US (occurrence: US)
  Receive Date: 20221012
  Receipt Date: 20221012
  Transmission Date: 20230112
  Serious: No
  Sender: FDA-Public Use
  Company Number: US-BRISTOL-MYERS SQUIBB COMPANY-2022-118505

PATIENT
  Age: 58 Year
  Sex: Female

DRUGS (1)
  1. ORENCIA [Suspect]
     Active Substance: ABATACEPT
     Indication: Product used for unknown indication
     Dosage: 125 MG/ML
     Route: 058

REACTIONS (4)
  - Peripheral swelling [Unknown]
  - Gait inability [Unknown]
  - Pain in extremity [Unknown]
  - Ligament injury [Unknown]

NARRATIVE: CASE EVENT DATE: 20221005
